FAERS Safety Report 21496788 (Version 1)
Quarter: 2022Q4

REPORT INFORMATION
  Report Type: Spontaneous
  Country: FR (occurrence: FR)
  Receive Date: 20221022
  Receipt Date: 20221022
  Transmission Date: 20230113
  Serious: Yes (Hospitalization)
  Sender: FDA-Public Use
  Company Number: None

PATIENT
  Age: 25 Year
  Sex: Male
  Weight: 59.35 kg

DRUGS (2)
  1. VORICONAZOLE [Suspect]
     Active Substance: VORICONAZOLE
     Indication: Bronchopulmonary aspergillosis
     Dosage: UNIT DOSE: 200 MG , FREQUENCY TIME : 12 HOURS, DURATION : 21 DAYS
     Route: 065
     Dates: start: 20220831, end: 20220921
  2. VORICONAZOLE [Suspect]
     Active Substance: VORICONAZOLE
     Dosage: UNIT DOSE: 200 MG , FREQUENCY TIME : 12 HOURS, DURATION : 5 DAYS
     Dates: start: 20220826, end: 20220831

REACTIONS (1)
  - Mixed liver injury [Recovering/Resolving]

NARRATIVE: CASE EVENT DATE: 20220920
